FAERS Safety Report 12245073 (Version 1)
Quarter: 2016Q2

REPORT INFORMATION
  Report Type: Spontaneous
  Country: US (occurrence: US)
  Receive Date: 20160407
  Receipt Date: 20160407
  Transmission Date: 20160815
  Serious: No
  Sender: FDA-Public Use
  Company Number: US-TEVA-624904USA

PATIENT
  Age: 34 Year
  Sex: Female

DRUGS (1)
  1. ZECUITY [Suspect]
     Active Substance: SUMATRIPTAN SUCCINATE
     Dosage: 6.5 MG / 4 HOURS
     Route: 062
     Dates: start: 20151223, end: 20151223

REACTIONS (7)
  - Drug ineffective [Unknown]
  - Application site erythema [Recovered/Resolved]
  - Skin reaction [Recovered/Resolved]
  - Device issue [Unknown]
  - Skin fissures [Recovered/Resolved]
  - Device leakage [Unknown]
  - Device adhesion issue [Unknown]

NARRATIVE: CASE EVENT DATE: 20151223
